FAERS Safety Report 4704824-2 (Version None)
Quarter: 2005Q3

REPORT INFORMATION
  Report Type: 
  Country: None (occurrence: None)
  Receive Date: 20050701
  Receipt Date: 20050321
  Transmission Date: 20060218
  Serious: No
  Sender: FDA-Public Use
  Company Number: US-GLAXOSMITHKLINE-A0550620A

PATIENT
  Age: 43 Year
  Sex: Female

DRUGS (5)
  1. PARNATE [Suspect]
     Dosage: 10MG TWICE PER DAY
     Route: 048
     Dates: start: 20050311
  2. TRILEPTAL [Concomitant]
  3. ABILIFY [Concomitant]
  4. VALIUM [Concomitant]
  5. VITAMINS [Concomitant]

REACTIONS (2)
  - ARRHYTHMIA [None]
  - HEART RATE INCREASED [None]
